FAERS Safety Report 7763183-1 (Version None)
Quarter: 2011Q3

REPORT INFORMATION
  Report Type: 
  Country: None (occurrence: None)
  Receive Date: 20110920
  Receipt Date: 20110913
  Transmission Date: 20111222
  Serious: Yes (Hospitalization, Other)
  Sender: FDA-Public Use
  Company Number: PHHY2011CA77003

PATIENT
  Sex: Female

DRUGS (2)
  1. SANDOSTATIN LAR [Suspect]
     Indication: POST GASTRIC SURGERY SYNDROME
     Dosage: 20 MG, QMO
     Route: 030
     Dates: start: 20110816
  2. SANDOSTATIN [Suspect]
     Indication: POST GASTRIC SURGERY SYNDROME
     Route: 058
     Dates: start: 20060101

REACTIONS (4)
  - RENAL DISORDER [None]
  - CIRCULATORY COLLAPSE [None]
  - DYSPNOEA [None]
  - MALAISE [None]
